FAERS Safety Report 5482446-6 (Version None)
Quarter: 2007Q4

REPORT INFORMATION
  Report Type: 
  Country: None (occurrence: None)
  Receive Date: 20071011
  Receipt Date: 20071005
  Transmission Date: 20080405
  Serious: Yes (Hospitalization)
  Sender: FDA-Public Use
  Company Number: US-MERCK-0710USA01486

PATIENT
  Age: 65 Year
  Sex: Female

DRUGS (1)
  1. FOSAMAX [Suspect]
     Route: 048

REACTIONS (3)
  - BLOOD CALCIUM DECREASED [None]
  - BLOOD MAGNESIUM DECREASED [None]
  - BONE DISORDER [None]
